FAERS Safety Report 19996274 (Version 1)
Quarter: 2021Q4

REPORT INFORMATION
  Report Type: Spontaneous
  Country: CN (occurrence: CN)
  Receive Date: 20211026
  Receipt Date: 20211026
  Transmission Date: 20220303
  Serious: Yes (Other)
  Sender: FDA-Public Use
  Company Number: CN-ROCHE-2944107

PATIENT
  Age: 40 Year
  Sex: Female

DRUGS (14)
  1. AVASTIN [Suspect]
     Active Substance: BEVACIZUMAB
     Indication: Colon cancer
     Dosage: A+XELOX
     Route: 065
     Dates: start: 20190715
  2. AVASTIN [Suspect]
     Active Substance: BEVACIZUMAB
     Dosage: A+CAP
     Route: 065
     Dates: end: 20200330
  3. AVASTIN [Suspect]
     Active Substance: BEVACIZUMAB
     Route: 065
     Dates: start: 20200601
  4. AVASTIN [Suspect]
     Active Substance: BEVACIZUMAB
     Dosage: A+CAP
     Route: 065
     Dates: start: 20200923, end: 202104
  5. AVASTIN [Suspect]
     Active Substance: BEVACIZUMAB
     Dosage: A+XELOX
     Route: 065
     Dates: start: 20210616
  6. XELODA [Suspect]
     Active Substance: CAPECITABINE
     Indication: Colon cancer
     Dosage: A+XELOX
     Route: 048
     Dates: start: 20190715
  7. XELODA [Suspect]
     Active Substance: CAPECITABINE
     Dosage: A+CAP
     Route: 048
     Dates: end: 20200330
  8. XELODA [Suspect]
     Active Substance: CAPECITABINE
     Route: 048
  9. XELODA [Suspect]
     Active Substance: CAPECITABINE
     Dosage: A+CAP
     Route: 048
     Dates: start: 20200923, end: 202104
  10. XELODA [Suspect]
     Active Substance: CAPECITABINE
     Dosage: A+XELOX
     Route: 048
     Dates: start: 20210616
  11. OXALIPLATIN [Concomitant]
     Active Substance: OXALIPLATIN
     Indication: Colon cancer
     Dosage: A+XELOX
     Dates: start: 20190715
  12. OXALIPLATIN [Concomitant]
     Active Substance: OXALIPLATIN
     Dosage: A+XELOX
     Dates: start: 20210616
  13. LEUCOVORIN CALCIUM [Concomitant]
     Active Substance: LEUCOVORIN CALCIUM
     Indication: Colon cancer
  14. FLUOROURACIL [Concomitant]
     Active Substance: FLUOROURACIL
     Indication: Colon cancer

REACTIONS (2)
  - Neurotoxicity [Unknown]
  - Myelosuppression [Unknown]
